FAERS Safety Report 10011653 (Version 3)
Quarter: 2014Q2

REPORT INFORMATION
  Report Type: Spontaneous
  Country: LB (occurrence: LB)
  Receive Date: 20140314
  Receipt Date: 20140515
  Transmission Date: 20141212
  Serious: Yes (Disabling)
  Sender: FDA-Public Use
  Company Number: PHHY2014LB030111

PATIENT
  Sex: Female

DRUGS (4)
  1. ACLASTA [Suspect]
     Indication: OSTEOPOROSIS
     Dosage: 5 MG, ONCE PER  YEAR
     Route: 042
     Dates: start: 20130525
  2. CRESTOR [Concomitant]
     Indication: BLOOD CHOLESTEROL INCREASED
     Dosage: UNK ONCE DAILIY
     Route: 048
  3. TARKA [Concomitant]
     Indication: HYPERTENSION
     Dosage: (180/2) QD
     Route: 048
  4. ASPICOT [Concomitant]
     Dosage: UNK, ONCE DAILY
     Route: 048

REACTIONS (13)
  - Device failure [Not Recovered/Not Resolved]
  - Osteonecrosis of jaw [Not Recovered/Not Resolved]
  - Toothache [Recovering/Resolving]
  - Bone disorder [Not Recovered/Not Resolved]
  - Breath odour [Recovering/Resolving]
  - Mouth haemorrhage [Recovering/Resolving]
  - Oral disorder [Recovering/Resolving]
  - Erythema [Recovering/Resolving]
  - Swelling [Recovering/Resolving]
  - Pain [Recovering/Resolving]
  - Exposed bone in jaw [Unknown]
  - Infection [Recovering/Resolving]
  - Purulence [Recovering/Resolving]
